FAERS Safety Report 5246149-5 (Version None)
Quarter: 2007Q1

REPORT INFORMATION
  Report Type: 
  Country: None (occurrence: None)
  Receive Date: 20070220
  Receipt Date: 20070207
  Transmission Date: 20070707
  Serious: Yes (Other)
  Sender: FDA-Public Use
  Company Number: GXKR2007GB01498

PATIENT
  Age: 59 Year
  Sex: Male

DRUGS (2)
  1. AMOXICILLIN TRIHYDRATE [Suspect]
     Indication: LOWER RESPIRATORY TRACT INFECTION
     Dosage: 250 MG, TID, ORAL
     Route: 048
     Dates: start: 20061215, end: 20061220
  2. CEFALEXIN(CEFELAXIN) [Suspect]
     Indication: LOWER RESPIRATORY TRACT INFECTION
     Dosage: 250 MG, TID, ORAL
     Route: 048
     Dates: start: 20061220, end: 20061227

REACTIONS (1)
  - ANAEMIA HAEMOLYTIC AUTOIMMUNE [None]
